FAERS Safety Report 9304303 (Version 1)
Quarter: 2013Q2

REPORT INFORMATION
  Report Type: Report from Study
  Country: US (occurrence: US)
  Receive Date: 20130522
  Receipt Date: 20130522
  Transmission Date: 20140414
  Serious: Yes (Other)
  Sender: FDA-Public Use
  Company Number: US-US-EMD SERONO, INC.-7212302

PATIENT
  Age: 48 Year
  Sex: Female

DRUGS (1)
  1. REBIF [Suspect]
     Indication: PRODUCT USED FOR UNKNOWN INDICATION
     Route: 058
     Dates: start: 20090108

REACTIONS (4)
  - Pneumonia [Recovered/Resolved]
  - Pleurisy [Recovered/Resolved]
  - Injection site scar [Not Recovered/Not Resolved]
  - Injection site induration [Not Recovered/Not Resolved]
